FAERS Safety Report 9528700 (Version 1)
Quarter: 2013Q1

REPORT INFORMATION
  Report Type: Spontaneous
  Country: US (occurrence: None)
  Receive Date: 20130329
  Receipt Date: 20130329
  Transmission Date: 20140127
  Serious: No
  Sender: FDA-Public Use
  Company Number: 1000042254

PATIENT
  Age: 76 Year
  Sex: Female

DRUGS (4)
  1. LINZESS (LINACLOTIDE) (290 MICROGRAM, CAPSULES) [Suspect]
     Indication: CONSTIPATION
     Dosage: 290 MCG (290 MCH, 1 IN 1 D)
     Route: 048
     Dates: start: 20130124, end: 20130126
  2. LORTAB (ACETAMINOPHEN, HYDROCODONE) (ACETAMINOPHEN, HYDROCODONE) [Concomitant]
  3. BENICAR (OLMESARTAN MEDOXOMIL) (OLMESARTAN MEDOXOMIL) [Concomitant]
  4. METFORMIN (METFORMIN) (METFORMIN) [Concomitant]

REACTIONS (4)
  - Flatulence [None]
  - Abdominal pain upper [None]
  - Nausea [None]
  - Abdominal distension [None]
